FAERS Safety Report 10580145 (Version 1)
Quarter: 2014Q4

REPORT INFORMATION
  Report Type: Spontaneous
  Country: PT (occurrence: PT)
  Receive Date: 20141112
  Receipt Date: 20141112
  Transmission Date: 20150529
  Serious: Yes (Other)
  Sender: FDA-Public Use
  Company Number: PT-WATSON-2014-24176

PATIENT
  Age: 19 Year
  Sex: Female

DRUGS (6)
  1. ETOPOSIDE (UNKNOWN) [Suspect]
     Active Substance: ETOPOSIDE
     Indication: STEM CELL TRANSPLANT
     Dosage: 120 MG/KG X 4 DAYS
     Route: 065
     Dates: start: 201205
  2. CARMUSTINE [Suspect]
     Active Substance: CARMUSTINE
     Indication: STEM CELL TRANSPLANT
     Dosage: 300 MG/M2 X 1 DAY
     Route: 065
     Dates: start: 201205
  3. CYTARABINE. [Suspect]
     Active Substance: CYTARABINE
     Indication: STEM CELL TRANSPLANT
     Dosage: 120 MG/KG 12/12:H X 4 DAYS
     Route: 065
     Dates: start: 201205
  4. CYCLOPHOSPHAMIDE (UNKNOWN) [Suspect]
     Active Substance: CYCLOPHOSPHAMIDE
     Indication: STEM CELL TRANSPLANT
     Dosage: 4 G, SINGLE
     Route: 065
     Dates: start: 201201
  5. MELPHALAN [Suspect]
     Active Substance: MELPHALAN
     Indication: STEM CELL TRANSPLANT
     Dosage: 140 MG/M2 X 1 DAY
     Route: 065
     Dates: start: 201205
  6. UROMITEXAN [Suspect]
     Active Substance: MESNA
     Indication: STEM CELL TRANSPLANT
     Dosage: UNK
     Route: 065
     Dates: start: 201201

REACTIONS (3)
  - Mucosal inflammation [Recovered/Resolved]
  - Herpes zoster cutaneous disseminated [Recovered/Resolved]
  - Pyrexia [Recovered/Resolved]
